FAERS Safety Report 9879699 (Version 1)
Quarter: 2014Q1

REPORT INFORMATION
  Report Type: Spontaneous
  Country: IT (occurrence: IT)
  Receive Date: 20140206
  Receipt Date: 20140206
  Transmission Date: 20141002
  Serious: Yes (Other)
  Sender: FDA-Public Use
  Company Number: PHHY2014IT012404

PATIENT
  Sex: Female

DRUGS (6)
  1. ACENOCOUMAROL [Suspect]
     Indication: THROMBOSIS PROPHYLAXIS
     Dosage: 2 MG, DAILY
     Route: 048
     Dates: start: 20110101, end: 20140120
  2. LISINOPRIL [Suspect]
     Indication: HYPERTENSION
     Dosage: 5 MG, DAILY
     Route: 048
     Dates: start: 20110101
  3. SPIRONOLACTONE [Suspect]
     Indication: HYPERTENSION
     Dosage: 25 MG, DAILY
     Route: 048
     Dates: start: 20110101
  4. ADALAT [Suspect]
     Indication: HYPERTENSION
     Dosage: 10 MG, DAILY
     Route: 048
     Dates: start: 20110101
  5. DIGOXIN [Concomitant]
     Dosage: 0.25 MG, UNK
     Route: 048
     Dates: start: 20110101, end: 20140120
  6. ISOSORBIDE [Concomitant]
     Dosage: UNK UKN, UNK
     Route: 048
     Dates: start: 20110101, end: 20140120

REACTIONS (3)
  - Hypertension [Unknown]
  - Cerebral haemorrhage [Unknown]
  - Haemoptysis [Unknown]
